FAERS Safety Report 20202235 (Version 6)
Quarter: 2023Q2

REPORT INFORMATION
  Report Type: Report from Study
  Country: US (occurrence: US)
  Receive Date: 20211217
  Receipt Date: 20230508
  Transmission Date: 20230722
  Serious: Yes (Other)
  Sender: FDA-Public Use
  Company Number: US-NOVARTISTESTPH-NVSC2021US289754

PATIENT
  Sex: Female

DRUGS (1)
  1. ENTRESTO [Suspect]
     Active Substance: SACUBITRIL\VALSARTAN
     Indication: Product used for unknown indication
     Dosage: UNK
     Route: 065

REACTIONS (8)
  - Myocardial infarction [Unknown]
  - Ankle fracture [Unknown]
  - Foot fracture [Unknown]
  - Panic attack [Unknown]
  - Peripheral swelling [Unknown]
  - Illness [Unknown]
  - Fall [Unknown]
  - Hypertension [Unknown]
